FAERS Safety Report 9605172 (Version 1)
Quarter: 2013Q4

REPORT INFORMATION
  Report Type: Spontaneous
  Country: US (occurrence: US)
  Receive Date: 20131008
  Receipt Date: 20131008
  Transmission Date: 20140711
  Serious: No
  Sender: FDA-Public Use
  Company Number: US-009507513-1310USA002362

PATIENT
  Sex: Female

DRUGS (5)
  1. ISENTRESS [Suspect]
     Indication: ANTIVIRAL TREATMENT
     Route: 065
  2. PREZISTA [Suspect]
     Indication: ANTIVIRAL TREATMENT
     Route: 065
  3. TENOFOVIR DISOPROXIL FUMARATE [Suspect]
     Indication: ANTIVIRAL TREATMENT
     Route: 065
  4. TRIZIVIR [Suspect]
     Indication: ANTIVIRAL TREATMENT
     Route: 065
  5. NORVIR [Suspect]
     Indication: ANTIVIRAL TREATMENT
     Route: 065

REACTIONS (1)
  - Exposure during pregnancy [Recovered/Resolved]
